FAERS Safety Report 23866070 (Version 1)
Quarter: 2024Q2

REPORT INFORMATION
  Report Type: Spontaneous
  Country: CN (occurrence: CN)
  Receive Date: 20240517
  Receipt Date: 20240517
  Transmission Date: 20240715
  Serious: Yes (Other)
  Sender: FDA-Public Use
  Company Number: CN-SUN PHARMACEUTICAL INDUSTRIES LTD-2024R1-446155

PATIENT
  Age: 64 Year
  Sex: Male

DRUGS (1)
  1. MESALAMINE [Suspect]
     Active Substance: MESALAMINE
     Indication: Abdominal pain
     Dosage: 3 GRAM
     Route: 048

REACTIONS (2)
  - Disease recurrence [Unknown]
  - Therapy cessation [Recovering/Resolving]
